FAERS Safety Report 9098587 (Version 2)
Quarter: 2013Q1

REPORT INFORMATION
  Report Type: Spontaneous
  Country: JP (occurrence: JP)
  Receive Date: 20130213
  Receipt Date: 20130219
  Transmission Date: 20140127
  Serious: Yes (Other)
  Sender: FDA-Public Use
  Company Number: JP-ELI_LILLY_AND_COMPANY-JP201302002112

PATIENT
  Age: 61 Year
  Sex: Female

DRUGS (2)
  1. CYMBALTA [Suspect]
     Dosage: UNK
     Route: 048
     Dates: start: 201203, end: 201204
  2. LAMICTAL [Concomitant]

REACTIONS (2)
  - Rash generalised [Unknown]
  - Liver disorder [Unknown]
